FAERS Safety Report 21694174 (Version 1)
Quarter: 2022Q4

REPORT INFORMATION
  Report Type: Report from Study
  Country: CA (occurrence: CA)
  Receive Date: 20221207
  Receipt Date: 20221207
  Transmission Date: 20230113
  Serious: Yes (Hospitalization)
  Sender: FDA-Public Use
  Company Number: CA-HORIZON THERAPEUTICS-HZN-2022-009387

PATIENT

DRUGS (3)
  1. RAVICTI [Suspect]
     Active Substance: GLYCEROL PHENYLBUTYRATE
     Indication: Urea cycle disorder
     Dosage: 2 ML, TID (THREE TIMES DAILY)
     Route: 065
     Dates: start: 20221121
  2. AMMONUL [Concomitant]
     Active Substance: SODIUM BENZOATE\SODIUM PHENYLACETATE
     Indication: Product used for unknown indication
     Dosage: 250MG/KG/D
  3. ARGININE [Concomitant]
     Active Substance: ARGININE
     Indication: Product used for unknown indication
     Dosage: 250MG/KG/D

REACTIONS (6)
  - Dyspnoea [Unknown]
  - Headache [Unknown]
  - Heart rate abnormal [Unknown]
  - Unevaluable event [Unknown]
  - Hypertension [Unknown]
  - Liver disorder [Unknown]

NARRATIVE: CASE EVENT DATE: 20220101
